FAERS Safety Report 18653472 (Version 1)
Quarter: 2020Q4

REPORT INFORMATION
  Report Type: Spontaneous
  Country: US (occurrence: US)
  Receive Date: 20201222
  Receipt Date: 20201222
  Transmission Date: 20210114
  Serious: Yes (Life-Threatening, Hospitalization)
  Sender: FDA-Public Use
  Company Number: None

PATIENT
  Age: 84 Year
  Sex: Female
  Weight: 81 kg

DRUGS (1)
  1. BAMLANIVIMAB. [Suspect]
     Active Substance: BAMLANIVIMAB
     Indication: COVID-19
     Dates: start: 20201215

REACTIONS (9)
  - Dyspnoea [None]
  - Hypoxia [None]
  - Hypertension [None]
  - Pneumonia [None]
  - Rales [None]
  - Acute pulmonary oedema [None]
  - Bundle branch block left [None]
  - Device infusion issue [None]
  - COVID-19 [None]

NARRATIVE: CASE EVENT DATE: 20201215
